FAERS Safety Report 18719221 (Version 1)
Quarter: 2021Q1

REPORT INFORMATION
  Report Type: Spontaneous
  Country: FR (occurrence: FR)
  Receive Date: 20210108
  Receipt Date: 20210108
  Transmission Date: 20210419
  Serious: Yes (Other)
  Sender: FDA-Public Use
  Company Number: FR-TEVA-2021-FR-1866258

PATIENT
  Age: 71 Year
  Sex: Male
  Weight: 60 kg

DRUGS (1)
  1. DOXAZOSINE TEVA 4 MG, COMPRIME A LIBERATION PROLONGEE [Suspect]
     Active Substance: DOXAZOSIN MESYLATE
     Indication: PROSTATIC ADENOMA
     Dosage: 4 MG
     Route: 048
     Dates: start: 20201211, end: 20201212

REACTIONS (1)
  - Syncope [Recovered/Resolved]

NARRATIVE: CASE EVENT DATE: 20201212
